FAERS Safety Report 6815322-4 (Version None)
Quarter: 2010Q3

REPORT INFORMATION
  Report Type: 
  Country: None (occurrence: None)
  Receive Date: 20100701
  Receipt Date: 20100701
  Transmission Date: 20110219
  Serious: Yes (Other)
  Sender: FDA-Public Use
  Company Number: None

PATIENT
  Age: 51 Year
  Sex: Female
  Weight: 74.9 kg

DRUGS (2)
  1. AVASTIN [Suspect]
     Indication: BREAST CANCER
     Dosage: AVASTIN 10 MG/KG Q 2 WEEKS IV
     Route: 042
     Dates: start: 20090821
  2. AVASTIN [Suspect]
     Indication: BREAST CANCER
     Dosage: AVASTIN 10 MG/KG Q 2 WEEKS IV
     Route: 042
     Dates: start: 20100528

REACTIONS (1)
  - NASAL SEPTUM PERFORATION [None]
